FAERS Safety Report 11135562 (Version 1)
Quarter: 2015Q2

REPORT INFORMATION
  Report Type: Spontaneous
  Country: US (occurrence: None)
  Receive Date: 20150522
  Receipt Date: 20150522
  Transmission Date: 20150821
  Serious: No
  Sender: FDA-Public Use
  Company Number: None

PATIENT
  Age: 28 Year
  Sex: Male

DRUGS (1)
  1. BENEFIX [Suspect]
     Active Substance: COAGULATION FACTOR IX RECOMBINANT HUMAN\ISOPROPYL ALCOHOL
     Indication: FACTOR IX DEFICIENCY
     Dosage: 4380 UNITS DAILY X 5 DAYS ENDING ON
     Route: 042

REACTIONS (5)
  - Pain in extremity [None]
  - Abdominal pain upper [None]
  - Dyspnoea [None]
  - Infusion site pain [None]
  - Chest discomfort [None]
